FAERS Safety Report 16262829 (Version 2)
Quarter: 2019Q2

REPORT INFORMATION
  Report Type: Spontaneous
  Country: US (occurrence: US)
  Receive Date: 20190502
  Receipt Date: 20190513
  Transmission Date: 20190711
  Serious: Yes (Death)
  Sender: FDA-Public Use
  Company Number: US-ROCHE-2307843

PATIENT
  Sex: Male
  Weight: 167.98 kg

DRUGS (9)
  1. XALKORI [Concomitant]
     Active Substance: CRIZOTINIB
     Dosage: ONGOING:UNKNOWN
     Route: 048
     Dates: start: 20190307
  2. AMIDARONE [Concomitant]
     Active Substance: AMIODARONE
  3. LATANOPROST. [Concomitant]
     Active Substance: LATANOPROST
     Dosage: ONGOING:UNKNOWN
     Route: 047
     Dates: start: 20190307
  4. FUROSEMIDE. [Concomitant]
     Active Substance: FUROSEMIDE
     Dosage: ONGOING : UNKNOWN
     Route: 048
     Dates: start: 20190307
  5. LATANOPROST. [Concomitant]
     Active Substance: LATANOPROST
     Dosage: ONGOING:UNKNOWN
     Route: 047
     Dates: start: 20190307
  6. NOVOLOG [Concomitant]
     Active Substance: INSULIN ASPART
     Indication: DIABETES MELLITUS
     Dosage: SLIDING SCALE, ONGOING: NO
     Route: 058
  7. TRAMADOL HCL [Concomitant]
     Active Substance: TRAMADOL HYDROCHLORIDE
     Dosage: ONGOING: UNKNOWN
     Route: 048
     Dates: start: 20190307
  8. LANTUS [Concomitant]
     Active Substance: INSULIN GLARGINE
     Indication: DIABETES MELLITUS
     Route: 058
  9. ALECENSA [Suspect]
     Active Substance: ALECTINIB HYDROCHLORIDE
     Indication: LUNG CARCINOMA CELL TYPE UNSPECIFIED STAGE IV
     Dosage: 4 CAPSULES, ONGOING :UNKNOWN
     Route: 048
     Dates: start: 2019

REACTIONS (3)
  - Haemoptysis [Not Recovered/Not Resolved]
  - Dyspnoea [Not Recovered/Not Resolved]
  - Lung carcinoma cell type unspecified stage IV [Fatal]
